FAERS Safety Report 6464304-3 (Version None)
Quarter: 2009Q4

REPORT INFORMATION
  Report Type: 
  Country: None (occurrence: None)
  Receive Date: 20091130
  Receipt Date: 20091130
  Transmission Date: 20100525
  Serious: Yes (Hospitalization)
  Sender: FDA-Public Use
  Company Number: None

PATIENT
  Age: 4 Year
  Sex: Female
  Weight: 28.8 kg

DRUGS (1)
  1. TRILEPTAL [Suspect]
     Dosage: 360 MG Q12H PO
     Route: 048
     Dates: start: 20061201, end: 20091110

REACTIONS (3)
  - BLOOD SODIUM DECREASED [None]
  - CONDITION AGGRAVATED [None]
  - CONVULSION [None]
